FAERS Safety Report 8185069-3 (Version None)
Quarter: 2012Q1

REPORT INFORMATION
  Report Type: 
  Country: None (occurrence: None)
  Receive Date: 20120305
  Receipt Date: 20120228
  Transmission Date: 20120608
  Serious: Yes (Other)
  Sender: FDA-Public Use
  Company Number: US-PFIZER INC-2012054159

PATIENT
  Sex: Female
  Weight: 61.2 kg

DRUGS (4)
  1. PREMARIN [Suspect]
     Indication: HORMONE REPLACEMENT THERAPY
     Dosage: 0.625 MG, DAILY
     Dates: start: 19820101
  2. ACCUPRIL [Suspect]
     Indication: CEREBROVASCULAR ACCIDENT
     Dosage: 40 MG, DAILY
     Dates: start: 20000101
  3. LIPITOR [Suspect]
     Indication: BLOOD CHOLESTEROL INCREASED
     Dosage: 40 MG, DAILY
     Dates: start: 20040101
  4. NORVASC [Suspect]
     Indication: CEREBROVASCULAR ACCIDENT
     Dosage: 10 MG, DAILY
     Dates: start: 20000101

REACTIONS (4)
  - PAIN IN EXTREMITY [None]
  - WEIGHT INCREASED [None]
  - THYROID DISORDER [None]
  - BLOOD GLUCOSE INCREASED [None]
